FAERS Safety Report 4645127-4 (Version None)
Quarter: 2005Q2

REPORT INFORMATION
  Report Type: 
  Country: None (occurrence: None)
  Receive Date: 20050426
  Receipt Date: 20000501
  Transmission Date: 20051028
  Serious: Yes (Other)
  Sender: FDA-Public Use
  Company Number: IE-JNJFOC-20050403379

PATIENT
  Sex: Female

DRUGS (7)
  1. HALOPERIDOL DECANOATE [Suspect]
     Indication: SCHIZOPHRENIA
     Route: 030
     Dates: start: 20000411, end: 20000411
  2. RISPERDAL [Concomitant]
     Dates: start: 20000320
  3. RISPERDAL [Concomitant]
     Dates: start: 20000320
  4. SERENACE [Concomitant]
     Dates: start: 20000320
  5. VALIUM [Concomitant]
     Dates: start: 20000320
  6. DALMANE [Concomitant]
     Dates: start: 20000320, end: 20000418
  7. COGENTIN [Concomitant]
     Dates: start: 20000411

REACTIONS (2)
  - HYPOAESTHESIA [None]
  - MUSCULOSKELETAL STIFFNESS [None]
